FAERS Safety Report 13009781 (Version 3)
Quarter: 2017Q2

REPORT INFORMATION
  Report Type: Spontaneous
  Country: US (occurrence: US)
  Receive Date: 20161208
  Receipt Date: 20170508
  Transmission Date: 20170830
  Serious: Yes (Other)
  Sender: FDA-Public Use
  Company Number: US-BAYER-2016-228151

PATIENT
  Age: 37 Year
  Sex: Female
  Weight: 72.56 kg

DRUGS (4)
  1. ALPRAZOLAM. [Concomitant]
     Active Substance: ALPRAZOLAM
     Indication: ANXIETY
     Dosage: UNK
     Dates: start: 2005
  2. HYDROCHLOROTHIAZIDE. [Concomitant]
     Active Substance: HYDROCHLOROTHIAZIDE
     Indication: HYPERTENSION
     Dosage: UNK
     Dates: start: 2013
  3. MIRENA [Suspect]
     Active Substance: LEVONORGESTREL
     Indication: CONTRACEPTION
     Dosage: 20 MCG/24HR, CONT
     Route: 015
     Dates: start: 201009, end: 20150922
  4. BUPROPION HYDROCHLORIDE. [Concomitant]
     Active Substance: BUPROPION HYDROCHLORIDE
     Indication: DEPRESSION
     Dosage: UNK
     Dates: start: 2004

REACTIONS (15)
  - Uterine infection [None]
  - Medical device discomfort [None]
  - Device difficult to use [None]
  - Depression [None]
  - Fear of death [None]
  - Genital haemorrhage [None]
  - Anxiety [None]
  - Internal injury [None]
  - Abdominal pain lower [Unknown]
  - Post-traumatic stress disorder [None]
  - Pelvic pain [Unknown]
  - Obsessive-compulsive disorder [None]
  - Gastrointestinal injury [None]
  - Uterine perforation [Unknown]
  - Pelvic infection [None]

NARRATIVE: CASE EVENT DATE: 201509
